FAERS Safety Report 18986212 (Version 1)
Quarter: 2021Q1

REPORT INFORMATION
  Report Type: Spontaneous
  Country: US (occurrence: US)
  Receive Date: 20210309
  Receipt Date: 20210309
  Transmission Date: 20210420
  Serious: Yes (Death, Hospitalization, Other)
  Sender: FDA-Public Use
  Company Number: US-UPSHER-SMITH LABORATORIES, LLC-2021USL00118

PATIENT
  Sex: Male

DRUGS (2)
  1. UNSPECIFIED MEDICATIONS [Suspect]
     Active Substance: UNSPECIFIED INGREDIENT
     Indication: LUNG DISORDER
  2. AMIODARONE HYDROCHLORIDE. [Suspect]
     Active Substance: AMIODARONE HYDROCHLORIDE
     Indication: ATRIAL FIBRILLATION
     Dosage: UNK
     Route: 048
     Dates: start: 201108

REACTIONS (9)
  - Off label use [Unknown]
  - Confusional state [Unknown]
  - Unevaluable event [Unknown]
  - Asthenia [Unknown]
  - Lung disorder [Fatal]
  - Cataract [Unknown]
  - Weight decreased [Unknown]
  - Blindness [Unknown]
  - Depression [Unknown]

NARRATIVE: CASE EVENT DATE: 201108
